FAERS Safety Report 9943581 (Version 2)
Quarter: 2014Q1

REPORT INFORMATION
  Report Type: Report from Study
  Country: US (occurrence: US)
  Receive Date: 20140303
  Receipt Date: 20140303
  Transmission Date: 20141002
  Serious: No
  Sender: FDA-Public Use
  Company Number: US-ABBVIE-12P-163-1004765-00

PATIENT
  Age: 56 Year
  Sex: Female
  Weight: 83.08 kg

DRUGS (2)
  1. HUMIRA [Suspect]
     Indication: CROHN^S DISEASE
     Dates: start: 20120822
  2. HYZAAR [Concomitant]
     Indication: HYPERTENSION

REACTIONS (10)
  - Skin discolouration [Not Recovered/Not Resolved]
  - Pruritus [Not Recovered/Not Resolved]
  - Urticaria [Not Recovered/Not Resolved]
  - Oral herpes [Not Recovered/Not Resolved]
  - Paraesthesia [Not Recovered/Not Resolved]
  - Pain in extremity [Not Recovered/Not Resolved]
  - Subcutaneous abscess [Recovered/Resolved]
  - Arthralgia [Not Recovered/Not Resolved]
  - Urticaria [Recovered/Resolved]
  - Injection site haemorrhage [Recovered/Resolved]
